FAERS Safety Report 19787260 (Version 2)
Quarter: 2021Q3

REPORT INFORMATION
  Report Type: Report from Study
  Country: US (occurrence: US)
  Receive Date: 20210903
  Receipt Date: 20210916
  Transmission Date: 20211014
  Serious: Yes (Hospitalization)
  Sender: FDA-Public Use
  Company Number: US-PFIZER INC-202101121092

PATIENT
  Sex: Male
  Weight: 105 kg

DRUGS (6)
  1. CYTARABINE. [Suspect]
     Active Substance: CYTARABINE
     Indication: B PRECURSOR TYPE ACUTE LEUKAEMIA
     Dosage: UNK, (TOTAL DOSE ADMINISTERED THIS COURSE (DOSE):  70 MG)
     Route: 037
     Dates: start: 20210729, end: 20210729
  2. DEXAMETHASONE. [Suspect]
     Active Substance: DEXAMETHASONE
     Indication: B PRECURSOR TYPE ACUTE LEUKAEMIA
     Dosage: UNK, (TOTAL DOSE ADMINISTERED THIS COURSE (DOSE):  168 MG)
     Route: 048
     Dates: start: 20210730, end: 20210814
  3. METHOTREXATE SODIUM. [Suspect]
     Active Substance: METHOTREXATE SODIUM
     Indication: B PRECURSOR TYPE ACUTE LEUKAEMIA
     Dosage: UNK, (TOTAL DOSE ADMINISTERED THIS COURSE (DOSE):  15 MG)
     Dates: start: 20210806, end: 20210806
  4. ONCASPAR [Suspect]
     Active Substance: PEGASPARGASE
     Indication: B PRECURSOR TYPE ACUTE LEUKAEMIA
     Dosage: UNK, (TOTAL DOSE ADMINISTERED THIS COURSE (DOSE):  3750 UNIT)
     Dates: start: 20210802, end: 20210802
  5. VINCRISTINE SULFATE. [Suspect]
     Active Substance: VINCRISTINE SULFATE
     Indication: B PRECURSOR TYPE ACUTE LEUKAEMIA
     Dosage: UNK, (TOTAL DOSE ADMINISTERED THIS COURSE (DOSE):  6 MG)
     Dates: start: 20210730, end: 20210730
  6. DAUNORUBICIN [Suspect]
     Active Substance: DAUNORUBICIN
     Indication: B PRECURSOR TYPE ACUTE LEUKAEMIA
     Dosage: UNK, (TOTAL DOSE ADMINISTERED THIS COURSE (DOSE):  174 MG)
     Dates: start: 20210730, end: 20210813

REACTIONS (2)
  - Embolism [Not Recovered/Not Resolved]
  - Seizure [Not Recovered/Not Resolved]

NARRATIVE: CASE EVENT DATE: 20210814
